FAERS Safety Report 4976883-3 (Version None)
Quarter: 2006Q2

REPORT INFORMATION
  Report Type: 
  Country: None (occurrence: None)
  Receive Date: 20060413
  Receipt Date: 20060403
  Transmission Date: 20061013
  Serious: Yes (Other)
  Sender: FDA-Public Use
  Company Number: 2006046945

PATIENT
  Age: 79 Year
  Sex: Female

DRUGS (12)
  1. LIPITOR [Suspect]
     Indication: ANGIOPATHY
     Dosage: 20 MG (10 MG, 2 IN 1 D) ORAL
     Route: 048
     Dates: start: 20060119
  2. ATENOLOL [Suspect]
     Indication: ILL-DEFINED DISORDER
  3. CELEBREX [Suspect]
     Indication: ILL-DEFINED DISORDER
  4. MAGNESIUM [Concomitant]
  5. ZINC [Concomitant]
  6. COUMADIN [Concomitant]
  7. INSULIN [Concomitant]
  8. ISOSORBIDE MONONITRATE [Concomitant]
  9. FOLIC ACID [Concomitant]
  10. ASCORBIC ACID [Concomitant]
  11. CENTRUM (MINERALS NOS, VITAMINS NOS) [Concomitant]
  12. CALCIUM GLUCONATE [Concomitant]

REACTIONS (11)
  - ASTHENIA [None]
  - BALANCE DISORDER [None]
  - CAROTID ARTERY STENOSIS [None]
  - COUGH [None]
  - DIFFICULTY IN WALKING [None]
  - FATIGUE [None]
  - FEAR [None]
  - FEELING ABNORMAL [None]
  - MYALGIA [None]
  - THROAT IRRITATION [None]
  - WEIGHT DECREASED [None]
